FAERS Safety Report 14935874 (Version 2)
Quarter: 2018Q2

REPORT INFORMATION
  Report Type: Report from Study
  Country: FR (occurrence: FR)
  Receive Date: 20180524
  Receipt Date: 20180531
  Transmission Date: 20180711
  Serious: No
  Sender: FDA-Public Use
  Company Number: FR-VIIV HEALTHCARE LIMITED-FR2018GSK090125

PATIENT
  Sex: Male

DRUGS (4)
  1. TRUVADA [Suspect]
     Active Substance: EMTRICITABINE\TENOFOVIR DISOPROXIL FUMARATE
     Indication: HIV INFECTION
     Dosage: UNK
     Dates: end: 20140709
  2. EDURANT [Concomitant]
     Active Substance: RILPIVIRINE HYDROCHLORIDE
     Indication: HIV INFECTION
  3. DOLUTEGRAVIR [Suspect]
     Active Substance: DOLUTEGRAVIR
     Indication: HIV INFECTION
     Dosage: 50 MG, BID
     Route: 048
     Dates: start: 20140307
  4. CELSENTRI [Concomitant]
     Active Substance: MARAVIROC
     Indication: HIV INFECTION

REACTIONS (7)
  - Dizziness [Unknown]
  - Nightmare [Unknown]
  - Overdose [Unknown]
  - Insomnia [Unknown]
  - Lumbar spinal stenosis [Unknown]
  - Nausea [Unknown]
  - Drug resistance [Unknown]
